FAERS Safety Report 9499940 (Version 1)
Quarter: 2013Q1

REPORT INFORMATION
  Report Type: Spontaneous
  Country: US (occurrence: None)
  Receive Date: 20130107
  Receipt Date: 20130107
  Transmission Date: 20140127
  Serious: No
  Sender: FDA-Public Use
  Company Number: PHEH2012US023174

PATIENT
  Sex: 0

DRUGS (1)
  1. GILENYA [Suspect]
     Dosage: ORAL
     Route: 048
     Dates: start: 201102, end: 201206

REACTIONS (2)
  - Muscle spasms [None]
  - Asthenia [None]
